FAERS Safety Report 14171127 (Version 3)
Quarter: 2018Q2

REPORT INFORMATION
  Report Type: Report from Study
  Country: US (occurrence: US)
  Receive Date: 20171108
  Receipt Date: 20180418
  Transmission Date: 20180711
  Serious: Yes (Hospitalization, Other)
  Sender: FDA-Public Use
  Company Number: US-BAYER-2017-200843

PATIENT
  Age: 64 Year
  Sex: Female

DRUGS (10)
  1. STIVARGA [Suspect]
     Active Substance: REGORAFENIB
     Indication: HEPATOCELLULAR CARCINOMA
     Dosage: UNK
     Dates: start: 20170817
  2. K-DUR [Concomitant]
     Active Substance: POTASSIUM CHLORIDE
  3. OXYCODONE [Concomitant]
     Active Substance: OXYCODONE
  4. SENNA [Concomitant]
     Active Substance: SENNA LEAF\SENNOSIDES\SENNOSIDES A AND B
  5. NORVASC [Concomitant]
     Active Substance: AMLODIPINE BESYLATE
  6. STIVARGA [Suspect]
     Active Substance: REGORAFENIB
     Indication: HEPATOCELLULAR CARCINOMA
     Dosage: 160 MG, UNK
  7. ZOFRAN [Concomitant]
     Active Substance: ONDANSETRON HYDROCHLORIDE
  8. COMPAZINE [Concomitant]
     Active Substance: PROCHLORPERAZINE MALEATE
  9. STIVARGA [Suspect]
     Active Substance: REGORAFENIB
     Indication: HEPATOCELLULAR CARCINOMA
     Dosage: UNK
     Dates: start: 20170913
  10. STIVARGA [Suspect]
     Active Substance: REGORAFENIB
     Indication: HEPATOCELLULAR CARCINOMA
     Dosage: DAILY DOSE 160 MG 21 DAYS ON AND 7 DAYS OFF
     Route: 048

REACTIONS (9)
  - Alpha 1 foetoprotein increased [None]
  - Headache [None]
  - Muscle spasms [None]
  - Pain in extremity [None]
  - Pyrexia [None]
  - Oesophageal varices haemorrhage [None]
  - Night sweats [None]
  - Urinary tract infection [None]
  - Hepatocellular carcinoma [Not Recovered/Not Resolved]
